FAERS Safety Report 20318882 (Version 1)
Quarter: 2022Q1

REPORT INFORMATION
  Report Type: Report from Study
  Country: US (occurrence: US)
  Receive Date: 20220110
  Receipt Date: 20220110
  Transmission Date: 20220424
  Serious: Yes (Other)
  Sender: FDA-Public Use
  Company Number: US-PFIZER INC-202200004607

PATIENT
  Age: 4 Year
  Sex: Male

DRUGS (6)
  1. CAMPTOSAR [Suspect]
     Active Substance: IRINOTECAN HYDROCHLORIDE
     Dosage: 50MG/M2 FOR PATIENTS }= 0.6 M2 (MAX DOSE 100 MG) OR PER DOSING TABLE FOR PATIENTS { 0.6 M2 IV OVER 9
     Route: 042
     Dates: start: 20180321
  2. TEMSIROLIMUS [Suspect]
     Active Substance: TEMSIROLIMUS
     Dosage: 15MG/M2 FOR PATIENTS }= 10 KG (MAX DOSE 25MG) OR 0.5 MG/KG FOR PATIENTS { 10 KG IV OVER 30-60 MINUTE
     Route: 042
     Dates: start: 20180321, end: 20180606
  3. VINCRISTINE SULFATE [Suspect]
     Active Substance: VINCRISTINE SULFATE
     Dosage: 1.5MG/M2 FOR PATIENTS }= 0.6 M2 (MAX DOSE 2MG) OR PER DOSING TABLE FOR PATIENTS { 0.6 M2 IV OVER 1 M
     Route: 042
     Dates: start: 20180321
  4. VINCRISTINE SULFATE [Suspect]
     Active Substance: VINCRISTINE SULFATE
     Dosage: 1.5MG/M2 FOR PATIENTS }= 0.6 M2 (MAX DOSE 2MG) OR PER DOSING TABLE FOR PATIENTS { 0.6 M2 IV OVER 1 M
     Dates: start: 20180611
  5. DACTINOMYCIN [Suspect]
     Active Substance: DACTINOMYCIN
     Dosage: 0.05MG/KG FOR PATIENTS }= 14 KG (MAX DOSE 2.5MG) OR PER DOSING TABLE FOR PATIENTS { 14 KG IV OVER 1-
     Route: 042
     Dates: start: 20180321
  6. CYCLOPHOSPHAMIDE [Suspect]
     Active Substance: CYCLOPHOSPHAMIDE
     Dosage: 1200MG/M2 FOR PATIENTS }= 0.6 M2 OR PER DOSING TABLE FOR PATIENTS { 0.6 M2 IV OVER 60 MINUTES ON DAY
     Route: 042
     Dates: start: 20180321

REACTIONS (3)
  - Lymphocyte count decreased [Recovered/Resolved]
  - Neutrophil count decreased [Recovered/Resolved]
  - White blood cell count decreased [Recovered/Resolved]

NARRATIVE: CASE EVENT DATE: 20180612
